FAERS Safety Report 12109013 (Version 1)
Quarter: 2016Q1

REPORT INFORMATION
  Report Type: Spontaneous
  Country: US (occurrence: None)
  Receive Date: 20160222
  Receipt Date: 20160222
  Transmission Date: 20160526
  Serious: Yes (Hospitalization)
  Sender: FDA-Public Use
  Company Number: None

PATIENT
  Age: 14 Year
  Sex: Male

DRUGS (1)
  1. EXJADE [Suspect]
     Active Substance: DEFERASIROX
     Indication: IRON METABOLISM DISORDER
     Dosage: 1000MG DAILY DISSOLVE IN WATER AND DRINK
     Dates: start: 20150416

REACTIONS (3)
  - Influenza [None]
  - Drug dose omission [None]
  - Upper respiratory tract infection [None]

NARRATIVE: CASE EVENT DATE: 20160201
